FAERS Safety Report 4317420-6 (Version None)
Quarter: 2004Q1

REPORT INFORMATION
  Report Type: 
  Country: None (occurrence: None)
  Receive Date: 20040312
  Receipt Date: 20040301
  Transmission Date: 20041129
  Serious: Yes (Hospitalization)
  Sender: FDA-Public Use
  Company Number: JP-JNJFOC-20040101260

PATIENT
  Age: 61 Year
  Sex: Female
  Weight: 44 kg

DRUGS (23)
  1. REMICADE [Suspect]
     Indication: RHEUMATOID ARTHRITIS
     Dosage: 3 MG / KG, 1 IN 1 AS NECESSARY
     Route: 041
     Dates: start: 20031010, end: 20031010
  2. REMICADE [Suspect]
     Indication: RHEUMATOID ARTHRITIS
     Dosage: 3 MG / KG, 1 IN 1 AS NECESSARY
     Route: 041
     Dates: start: 20031024, end: 20031024
  3. REMICADE [Suspect]
     Indication: RHEUMATOID ARTHRITIS
     Dosage: 3 MG / KG, 1 IN 1 AS NECESSARY
     Route: 041
     Dates: start: 20031121, end: 20031121
  4. RHEUMATREX [Suspect]
     Indication: RHEUMATOID ARTHRITIS
     Dosage: SEE IMAGE
     Route: 048
     Dates: start: 20020921, end: 20021011
  5. RHEUMATREX [Suspect]
     Indication: RHEUMATOID ARTHRITIS
     Dosage: SEE IMAGE
     Route: 048
     Dates: start: 20021012, end: 20021018
  6. RHEUMATREX [Suspect]
     Indication: RHEUMATOID ARTHRITIS
     Dosage: SEE IMAGE
     Route: 048
     Dates: start: 20021112, end: 20021118
  7. RHEUMATREX [Suspect]
     Indication: RHEUMATOID ARTHRITIS
     Dosage: SEE IMAGE
     Route: 048
     Dates: start: 20021119, end: 20021125
  8. RHEUMATREX [Suspect]
     Indication: RHEUMATOID ARTHRITIS
     Dosage: SEE IMAGE
     Route: 048
     Dates: start: 20021126, end: 20021205
  9. RHEUMATREX [Suspect]
     Indication: RHEUMATOID ARTHRITIS
     Dosage: SEE IMAGE
     Route: 048
     Dates: start: 20021206, end: 20021212
  10. RHEUMATREX [Suspect]
     Indication: RHEUMATOID ARTHRITIS
     Dosage: SEE IMAGE
     Route: 048
     Dates: start: 20030828, end: 20040106
  11. ISONIAZID [Concomitant]
  12. PSL (ALL OTHER THERAPEUTIC PRODUCTS) [Concomitant]
  13. LOXONINE (ALL OTHER THERAPEUTIC PRODUCTS) [Concomitant]
  14. FOLIAMIN (FOLIC ACID) [Concomitant]
  15. AMLODIPINE BESYLATE [Concomitant]
  16. FERROMIA (FERROUS CITRATE) [Concomitant]
  17. ISONIAZID [Concomitant]
  18. SEDIEL (TANDOSPIRONE CITRATE) [Concomitant]
  19. TOLEDOMIN (MILNACIPRAN HYDROCHLORIDE) [Concomitant]
  20. PROMAC (NITROFURANTOIN) [Concomitant]
  21. ERISPAN (FLUDIAZEPAM ) [Concomitant]
  22. BLOPRESS (CANDESARTAN CILEXETIL) [Concomitant]
  23. MAGNESIUM OXIDE (MAGNESIUM OXIDE) [Concomitant]

REACTIONS (11)
  - ALANINE AMINOTRANSFERASE INCREASED [None]
  - ARTHRALGIA [None]
  - BLOOD ALKALINE PHOSPHATASE INCREASED [None]
  - BLOOD CHOLESTEROL INCREASED [None]
  - BLOOD CREATINE PHOSPHOKINASE INCREASED [None]
  - BLOOD LACTATE DEHYDROGENASE INCREASED [None]
  - CYTOMEGALOVIRUS ANTIBODY POSITIVE [None]
  - DRUG INTERACTION [None]
  - GAMMA-GLUTAMYLTRANSFERASE INCREASED [None]
  - INTERSTITIAL LUNG DISEASE [None]
  - RED BLOOD CELL COUNT DECREASED [None]
